FAERS Safety Report 5911075-2 (Version None)
Quarter: 2008Q4

REPORT INFORMATION
  Report Type: 
  Country: None (occurrence: None)
  Receive Date: 20081007
  Receipt Date: 20071004
  Transmission Date: 20090506
  Serious: No
  Sender: FDA-Public Use
  Company Number: US-BRISTOL-MYERS SQUIBB COMPANY-13928981

PATIENT
  Sex: Female
  Weight: 82 kg

DRUGS (3)
  1. AVAPRO [Suspect]
     Indication: HYPERTENSION
     Dosage: TAKES HALF TABLET OF 150 MG WHEN BLOOD PRESSURE IS TOO LOW.
     Route: 048
     Dates: start: 19990101
  2. ALPRAZOLAM (GEN) [Concomitant]
  3. VITAMIN D [Concomitant]

REACTIONS (3)
  - HEADACHE [None]
  - SPEECH DISORDER [None]
  - VARICOSE VEIN [None]
